FAERS Safety Report 14739861 (Version 1)
Quarter: 2018Q2

REPORT INFORMATION
  Report Type: Spontaneous
  Country: FR (occurrence: FR)
  Receive Date: 20180410
  Receipt Date: 20180410
  Transmission Date: 20180711
  Serious: Yes (Other)
  Sender: FDA-Public Use
  Company Number: FR-MERCK KGAA-2045437

PATIENT
  Age: 57 Year
  Sex: Female

DRUGS (1)
  1. NOVOTHYROX [Suspect]
     Active Substance: LEVOTHYROXINE SODIUM
     Indication: PRODUCT USED FOR UNKNOWN INDICATION
     Dates: start: 201705

REACTIONS (23)
  - Dizziness [None]
  - Hypokinesia [None]
  - Agitation [None]
  - Sleep disorder [None]
  - Middle insomnia [None]
  - Visual impairment [None]
  - Depression [None]
  - Depressed mood [None]
  - Aggression [None]
  - Alopecia [None]
  - Joint swelling [None]
  - Personal relationship issue [None]
  - Nervousness [None]
  - Decreased interest [None]
  - Muscle spasms [None]
  - Immobile [None]
  - Weight increased [None]
  - Mood altered [None]
  - Blood pressure increased [None]
  - Fatigue [None]
  - Affective disorder [None]
  - Negative thoughts [None]
  - Disturbance in attention [None]

NARRATIVE: CASE EVENT DATE: 2017
